FAERS Safety Report 6588224-9 (Version None)
Quarter: 2010Q1

REPORT INFORMATION
  Report Type: 
  Country: None (occurrence: None)
  Receive Date: 20100217
  Receipt Date: 20100217
  Transmission Date: 20100710
  Serious: No
  Sender: FDA-Public Use
  Company Number: None

PATIENT
  Age: 39 Year
  Sex: Female
  Weight: 65.7716 kg

DRUGS (2)
  1. ZICAM NASAL SWABS [Suspect]
     Indication: NASOPHARYNGITIS
     Dosage: ONE SWAB 2X A DAY NASAL
     Route: 045
     Dates: start: 20091005, end: 20091007
  2. ZICAM NASAL SWABS [Suspect]
     Indication: PROPHYLAXIS
     Dosage: ONE SWAB 2X A DAY NASAL
     Route: 045
     Dates: start: 20091005, end: 20091007

REACTIONS (2)
  - MYOKYMIA [None]
  - PARAESTHESIA [None]
